FAERS Safety Report 24279328 (Version 2)
Quarter: 2024Q3

REPORT INFORMATION
  Report Type: Spontaneous
  Country: JP (occurrence: JP)
  Receive Date: 20240903
  Receipt Date: 20240906
  Transmission Date: 20241016
  Serious: Yes (Hospitalization)
  Sender: JOHNSON AND JOHNSON
  Company Number: JP-BAYER-2024A125623

PATIENT
  Age: 84 Year
  Weight: 39 kg

DRUGS (2)
  1. XARELTO [Suspect]
     Active Substance: RIVAROXABAN
     Indication: Atrial fibrillation
     Dosage: UNK
     Route: 048
     Dates: end: 20240827
  2. XARELTO [Suspect]
     Active Substance: RIVAROXABAN
     Dosage: THERAPY START DATE : 03/SEP/2024
     Route: 048

REACTIONS (2)
  - Cerebral infarction [Recovering/Resolving]
  - Therapeutic product effect incomplete [Recovering/Resolving]

NARRATIVE: CASE EVENT DATE: 20240828
